FAERS Safety Report 7305576-2 (Version None)
Quarter: 2011Q1

REPORT INFORMATION
  Report Type: 
  Country: None (occurrence: None)
  Receive Date: 20110210
  Receipt Date: 20110204
  Transmission Date: 20110831
  Serious: Yes (Other)
  Sender: FDA-Public Use
  Company Number: 2010SP065417

PATIENT
  Sex: Female

DRUGS (2)
  1. DURATESTON (SUSTANON /00593501/) [Suspect]
     Indication: PRODUCT USED FOR UNKNOWN INDICATION
     Dosage: ; OTHER
     Route: 050
     Dates: start: 20070101
  2. DECA-DURABOLIN [Suspect]
     Indication: PRODUCT USED FOR UNKNOWN INDICATION
     Dosage: ; OTHER
     Route: 050
     Dates: start: 20070101

REACTIONS (1)
  - INFERTILITY FEMALE [None]
